FAERS Safety Report 4431967-3 (Version None)
Quarter: 2004Q3

REPORT INFORMATION
  Report Type: 
  Country: None (occurrence: None)
  Receive Date: 20040819
  Receipt Date: 20040813
  Transmission Date: 20050211
  Serious: Yes (Other)
  Sender: FDA-Public Use
  Company Number: 2003-06-3319

PATIENT
  Age: 27 Year
  Sex: Female

DRUGS (2)
  1. CLARITIN-D [Suspect]
     Dosage: ORAL
     Route: 048
  2. TRIMOX CAPSULES [Concomitant]

REACTIONS (1)
  - MYOCARDIAL INFARCTION [None]
